FAERS Safety Report 24691292 (Version 3)
Quarter: 2025Q3

REPORT INFORMATION
  Report Type: Spontaneous
  Country: JP (occurrence: JP)
  Receive Date: 20241203
  Receipt Date: 20250911
  Transmission Date: 20251021
  Serious: Yes (Other)
  Sender: ARGENX BVBA
  Company Number: JP-ARGENX-2024-ARGX-JP010892AA

PATIENT

DRUGS (4)
  1. VYVGART [Suspect]
     Active Substance: EFGARTIGIMOD ALFA-FCAB
     Indication: Myasthenia gravis
     Route: 042
  2. CHLORPROMAZINE [Concomitant]
     Active Substance: CHLORPROMAZINE
     Indication: Insomnia
     Route: 048
  3. PREDNISOLONE [Concomitant]
     Active Substance: PREDNISOLONE
     Indication: Myasthenia gravis
     Route: 065
  4. PREDNISOLONE [Concomitant]
     Active Substance: PREDNISOLONE
     Route: 065

REACTIONS (5)
  - Sudden hearing loss [Unknown]
  - Meniere^s disease [Unknown]
  - Pain [Unknown]
  - Blepharospasm [Unknown]
  - COVID-19 [Unknown]
